FAERS Safety Report 22586951 (Version 4)
Quarter: 2024Q2

REPORT INFORMATION
  Report Type: Report from Study
  Country: NL (occurrence: NL)
  Receive Date: 20230612
  Receipt Date: 20240401
  Transmission Date: 20240716
  Serious: Yes (Other)
  Sender: FDA-Public Use
  Company Number: NL-ABBVIE-5283420

PATIENT
  Sex: Female

DRUGS (12)
  1. CARBIDOPA\LEVODOPA [Suspect]
     Active Substance: CARBIDOPA\LEVODOPA
     Indication: Parkinson^s disease
     Dosage: MD 15.5 ML; CD 3.4 ML/H; ED 3.0 ML?REMAINS AT 16 HOURS
     Route: 050
     Dates: start: 20231206, end: 20240327
  2. CARBIDOPA\LEVODOPA [Suspect]
     Active Substance: CARBIDOPA\LEVODOPA
     Dosage: MD 15.5 ML; CD 3.4 ML/H; ED 3.0 ML?REMAINS AT 16 HOURS
     Route: 050
     Dates: start: 20231030, end: 20231206
  3. CARBIDOPA\LEVODOPA [Suspect]
     Active Substance: CARBIDOPA\LEVODOPA
     Dosage: MD 15.5 ML; CD 3.4 ML/H; ED 3.0 ML?DURATION TEXT: REMAINS AT 16 HOURS
     Route: 050
     Dates: start: 20230605, end: 20231029
  4. CARBIDOPA\LEVODOPA [Suspect]
     Active Substance: CARBIDOPA\LEVODOPA
     Dosage: MD 14.5 ML; CD 3.4 ML/H; ED 3.0 ML?DURATION TEXT: REMAINS AT 16 HOURS
     Route: 050
     Dates: start: 20240327
  5. CARBIDOPA\LEVODOPA [Suspect]
     Active Substance: CARBIDOPA\LEVODOPA
     Route: 050
     Dates: start: 20220118
  6. POLYETHYLENE GLYCOLS [Concomitant]
     Active Substance: POLYETHYLENE GLYCOLS
     Indication: Bowel movement irregularity
     Dosage: 1 SACHET
  7. PANTOPRAZOLE [Concomitant]
     Active Substance: PANTOPRAZOLE
     Indication: Gastrointestinal disorder prophylaxis
     Dosage: 1 TABLET
  8. CARBIDOPA\LEVODOPA [Concomitant]
     Active Substance: CARBIDOPA\LEVODOPA
     Indication: Parkinson^s disease
     Dosage: 1 TABLET
  9. CLONAZEPAM [Concomitant]
     Active Substance: CLONAZEPAM
     Indication: Seizure prophylaxis
     Dosage: 1 TABLET
  10. BENSERAZIDE\LEVODOPA [Concomitant]
     Active Substance: BENSERAZIDE\LEVODOPA
     Indication: Parkinson^s disease
     Dosage: FREQUENCY TEXT: 2X 1 TABLET AND 2X 0.5 TABLETS PER DAY
  11. CITALOPRAM [Concomitant]
     Active Substance: CITALOPRAM\CITALOPRAM HYDROBROMIDE
     Indication: Antidepressant therapy
     Dosage: 1 TABLET
  12. MEBEVERINE [Concomitant]
     Active Substance: MEBEVERINE
     Indication: Irritable bowel syndrome
     Dosage: 1 TABLET? RETARD

REACTIONS (37)
  - Blindness unilateral [Not Recovered/Not Resolved]
  - Taste disorder [Not Recovered/Not Resolved]
  - Visual impairment [Recovered/Resolved]
  - Stoma site discharge [Not Recovered/Not Resolved]
  - Nocturia [Not Recovered/Not Resolved]
  - Posture abnormal [Not Recovered/Not Resolved]
  - Stoma site pain [Not Recovered/Not Resolved]
  - Dyskinesia [Not Recovered/Not Resolved]
  - Flatulence [Not Recovered/Not Resolved]
  - Muscle rigidity [Not Recovered/Not Resolved]
  - Fatigue [Not Recovered/Not Resolved]
  - Walking aid user [Not Recovered/Not Resolved]
  - Balance disorder [Not Recovered/Not Resolved]
  - Urinary tract infection [Recovered/Resolved]
  - Depressed mood [Not Recovered/Not Resolved]
  - Pain in extremity [Not Recovered/Not Resolved]
  - Pain [Unknown]
  - Therapeutic product effect variable [Not Recovered/Not Resolved]
  - Gait disturbance [Not Recovered/Not Resolved]
  - Bradykinesia [Not Recovered/Not Resolved]
  - Parkinson^s disease [Not Recovered/Not Resolved]
  - Device issue [Not Recovered/Not Resolved]
  - Abdominal pain [Recovering/Resolving]
  - Abnormal faeces [Unknown]
  - Bowel movement irregularity [Recovering/Resolving]
  - Unevaluable event [Not Recovered/Not Resolved]
  - On and off phenomenon [Not Recovered/Not Resolved]
  - Feeling abnormal [Not Recovered/Not Resolved]
  - Freezing phenomenon [Not Recovered/Not Resolved]
  - Mobility decreased [Not Recovered/Not Resolved]
  - Therapeutic product effect incomplete [Not Recovered/Not Resolved]
  - Dizziness postural [Unknown]
  - Hyperkinesia [Not Recovered/Not Resolved]
  - Dysphagia [Not Recovered/Not Resolved]
  - Obsessive-compulsive disorder [Unknown]
  - Hallucination [Unknown]
  - Visual impairment [Not Recovered/Not Resolved]

NARRATIVE: CASE EVENT DATE: 20230101
